FAERS Safety Report 5385777-3 (Version None)
Quarter: 2007Q3

REPORT INFORMATION
  Report Type: 
  Country: None (occurrence: None)
  Receive Date: 20070712
  Receipt Date: 20070705
  Transmission Date: 20080115
  Serious: Yes (Death, Hospitalization)
  Sender: FDA-Public Use
  Company Number: GB-GENENTECH-244122

PATIENT
  Age: 67 Year
  Sex: Male

DRUGS (3)
  1. MABTHERA [Suspect]
     Indication: RHEUMATOID ARTHRITIS
     Dosage: 500 MG, BID
     Route: 042
     Dates: start: 20060927, end: 20061011
  2. METHOTREXATE [Suspect]
     Indication: RHEUMATOID ARTHRITIS
     Dosage: 20 MG, UNK
     Route: 058
     Dates: start: 20000101, end: 20070103
  3. FOLIC ACID [Concomitant]
     Indication: DRUG USE FOR UNKNOWN INDICATION
     Dosage: 5 MG, UNK
     Route: 048
     Dates: start: 20000101, end: 20070105

REACTIONS (3)
  - INFECTION [None]
  - LUNG DISORDER [None]
  - PNEUMONITIS [None]
